FAERS Safety Report 8503034-0 (Version None)
Quarter: 2012Q3

REPORT INFORMATION
  Report Type: 
  Country: None (occurrence: None)
  Receive Date: 20120705
  Receipt Date: 20120705
  Transmission Date: 20120928
  Serious: Yes (Other)
  Sender: FDA-Public Use
  Company Number: None

PATIENT
  Age: 50 Year
  Sex: Female
  Weight: 88.4514 kg

DRUGS (4)
  1. CELEXA [Suspect]
     Indication: PANIC DISORDER
     Dosage: 1 1/2 TAB DAILY PO
     Route: 048
     Dates: start: 20100916, end: 20120704
  2. CELEXA [Suspect]
     Indication: ANXIETY
     Dosage: 1 1/2 TAB DAILY PO
     Route: 048
     Dates: start: 20100916, end: 20120704
  3. CELEXA [Suspect]
     Indication: DEPRESSION
     Dosage: 1 1/2 TAB DAILY PO
     Route: 048
     Dates: start: 20100916, end: 20120704
  4. SERTRALINE HYDROCHLORIDE [Suspect]
     Indication: DEPRESSION
     Dosage: 1 TAB, INCREASE TO 2 TABS DAILY, PO
     Route: 048
     Dates: start: 20120621, end: 20120622

REACTIONS (16)
  - SLEEP APNOEA SYNDROME [None]
  - DRUG INEFFECTIVE [None]
  - FEELING ABNORMAL [None]
  - HEADACHE [None]
  - MUSCLE TIGHTNESS [None]
  - IMPAIRED WORK ABILITY [None]
  - DEPRESSION [None]
  - ANXIETY [None]
  - DYSSTASIA [None]
  - AGITATION [None]
  - MEMORY IMPAIRMENT [None]
  - FATIGUE [None]
  - PANIC DISORDER [None]
  - PANIC ATTACK [None]
  - INSOMNIA [None]
  - NERVOUS SYSTEM DISORDER [None]
